FAERS Safety Report 4659226-4 (Version None)
Quarter: 2005Q2

REPORT INFORMATION
  Report Type: 
  Country: None (occurrence: None)
  Receive Date: 20050511
  Receipt Date: 20050502
  Transmission Date: 20051028
  Serious: Yes (Hospitalization)
  Sender: FDA-Public Use
  Company Number: 2005PK00797

PATIENT
  Age: 83 Year
  Sex: Female
  Weight: 70 kg

DRUGS (2)
  1. ESOMEPRAZOL [Suspect]
  2. PHENPROCOUMON [Interacting]

REACTIONS (9)
  - CHOLESTASIS [None]
  - DIARRHOEA [None]
  - DRUG INTERACTION [None]
  - FATIGUE [None]
  - GASTROINTESTINAL ANGIODYSPLASIA [None]
  - HEPATITIS [None]
  - HEPATOCELLULAR DAMAGE [None]
  - HEPATOTOXICITY [None]
  - HIATUS HERNIA [None]
